FAERS Safety Report 19994323 (Version 1)
Quarter: 2021Q4

REPORT INFORMATION
  Report Type: Spontaneous
  Country: NO (occurrence: NO)
  Receive Date: 20211025
  Receipt Date: 20211025
  Transmission Date: 20220303
  Serious: Yes (Other)
  Sender: FDA-Public Use
  Company Number: NO-ELI_LILLY_AND_COMPANY-NO202110006843

PATIENT
  Sex: Female

DRUGS (2)
  1. TALTZ [Suspect]
     Active Substance: IXEKIZUMAB
     Indication: Psoriatic arthropathy
     Dosage: 160 MG, SINGLE
     Route: 065
  2. TALTZ [Suspect]
     Active Substance: IXEKIZUMAB
     Indication: Psoriasis
     Dosage: 80 MG, OTHER, EVERY TWO WEEKS
     Route: 065

REACTIONS (7)
  - Abdominal pain [Unknown]
  - Arthralgia [Unknown]
  - Pyrexia [Unknown]
  - Headache [Unknown]
  - General physical health deterioration [Unknown]
  - Peripheral swelling [Unknown]
  - Anaphylactic reaction [Unknown]
